FAERS Safety Report 5091476-8 (Version None)
Quarter: 2006Q3

REPORT INFORMATION
  Report Type: 
  Country: None (occurrence: None)
  Receive Date: 20060829
  Receipt Date: 20060807
  Transmission Date: 20061208
  Serious: Yes (Life-Threatening, Hospitalization)
  Sender: FDA-Public Use
  Company Number: FRAALM06083

PATIENT
  Age: 96 Year
  Sex: Female
  Weight: 37 kg

DRUGS (5)
  1. TRIAMTERENE AND HYDROCHLOROTHIAZIDE [Suspect]
     Indication: ESSENTIAL HYPERTENSION
     Route: 048
     Dates: end: 20060619
  2. VALSARTAN [Concomitant]
     Indication: HYPERTENSION
     Dosage: 160MG UNKNOWN
     Route: 048
     Dates: end: 20060619
  3. LERCANIDIPINE [Concomitant]
     Indication: ESSENTIAL HYPERTENSION
     Route: 048
     Dates: end: 20060620
  4. GLIBENCLAMIDE [Concomitant]
     Indication: DIABETES MELLITUS
     Route: 065
     Dates: end: 20060619
  5. FENSPIRIDE [Concomitant]
     Route: 048
     Dates: end: 20060619

REACTIONS (7)
  - CEREBROVASCULAR ACCIDENT [None]
  - CIRCULATORY COLLAPSE [None]
  - ELECTROCARDIOGRAM ABNORMAL [None]
  - FACIAL PALSY [None]
  - HYPERKALAEMIA [None]
  - MOTOR DYSFUNCTION [None]
  - RENAL FAILURE ACUTE [None]
